FAERS Safety Report 6974653-8 (Version None)
Quarter: 2010Q3

REPORT INFORMATION
  Report Type: 
  Country: None (occurrence: None)
  Receive Date: 20100909
  Receipt Date: 20100909
  Transmission Date: 20110219
  Serious: Yes (Hospitalization)
  Sender: FDA-Public Use
  Company Number: None

PATIENT
  Age: 63 Year
  Sex: Male

DRUGS (1)
  1. WARFARIN SODIUM [Suspect]
     Dosage: 6 MG EVERY DAY PO
     Route: 048
     Dates: start: 20100818

REACTIONS (1)
  - INTERNATIONAL NORMALISED RATIO INCREASED [None]
